FAERS Safety Report 7107748-9 (Version None)
Quarter: 2010Q4

REPORT INFORMATION
  Report Type: 
  Country: None (occurrence: None)
  Receive Date: 20101117
  Receipt Date: 20101109
  Transmission Date: 20110411
  Serious: Yes (Hospitalization)
  Sender: FDA-Public Use
  Company Number: NL-BRISTOL-MYERS SQUIBB COMPANY-15386469

PATIENT
  Age: 70 Year
  Sex: Male

DRUGS (10)
  1. CETUXIMAB [Suspect]
     Indication: NON-SMALL CELL LUNG CANCER
     Dosage: CUMULATIVE DOSE:3102MG
     Route: 042
     Dates: start: 20100921
  2. CISPLATIN [Suspect]
     Indication: NON-SMALL CELL LUNG CANCER
     Dosage: CUMULATIVE DOSE:264MG
     Route: 042
     Dates: start: 20100927
  3. SUCRALFATE [Concomitant]
     Dates: start: 20101008
  4. TRAMADOL HCL [Concomitant]
  5. PANTOPRAZOLE SODIUM [Concomitant]
     Dates: start: 20101008
  6. MAALOX [Concomitant]
     Dates: start: 20101001
  7. ENALAPRIL MALEATE [Concomitant]
  8. HYDROCHLOROTHIAZIDE [Concomitant]
  9. AMLODIPINE [Concomitant]
  10. VALSARTAN [Concomitant]

REACTIONS (2)
  - DEHYDRATION [None]
  - DYSPHAGIA [None]
